FAERS Safety Report 20494267 (Version 1)
Quarter: 2022Q1

REPORT INFORMATION
  Report Type: Spontaneous
  Country: US (occurrence: US)
  Receive Date: 20220221
  Receipt Date: 20220221
  Transmission Date: 20220423
  Serious: No
  Sender: FDA-Public Use
  Company Number: US-ORGANON-O2202USA000777

PATIENT
  Sex: Female

DRUGS (1)
  1. NEXPLANON [Suspect]
     Active Substance: ETONOGESTREL
     Dosage: 1 IMPLANT, LEFT UPPER ARM, DOSE/FREQUENCY: 68 MG
     Route: 059
     Dates: start: 20220118, end: 20220119

REACTIONS (7)
  - Nausea [Unknown]
  - Dizziness [Unknown]
  - Headache [Unknown]
  - Implant site pain [Unknown]
  - Implant site rash [Unknown]
  - Implant site pruritus [Unknown]
  - Implant site mass [Unknown]

NARRATIVE: CASE EVENT DATE: 20220101
